FAERS Safety Report 5351136-2 (Version None)
Quarter: 2007Q2

REPORT INFORMATION
  Report Type: 
  Country: None (occurrence: None)
  Receive Date: 20070606
  Receipt Date: 20070424
  Transmission Date: 20071010
  Serious: Yes (Hospitalization)
  Sender: FDA-Public Use
  Company Number: 484851

PATIENT
  Age: 49 Year
  Sex: Female

DRUGS (2)
  1. PEGASYS [Suspect]
     Indication: HEPATITIS C
     Dosage: 180 MCG 1 PER WEEK
     Dates: start: 20070112, end: 20070216
  2. RIBAVIRIN [Suspect]
     Indication: HEPATITIS C
     Dosage: 5 DOSE FORM DAILY
     Dates: start: 20070112, end: 20070216

REACTIONS (5)
  - BLOOD TRIGLYCERIDES INCREASED [None]
  - GALLBLADDER DISORDER [None]
  - GASTRIC ULCER [None]
  - HEART RATE INCREASED [None]
  - PANCREATITIS [None]
